FAERS Safety Report 5727594-8 (Version None)
Quarter: 2008Q2

REPORT INFORMATION
  Report Type: 
  Country: None (occurrence: None)
  Receive Date: 20080428
  Receipt Date: 20070904
  Transmission Date: 20081010
  Serious: Yes (Other)
  Sender: FDA-Public Use
  Company Number: 161042USA

PATIENT
  Age: 39 Year
  Sex: Male

DRUGS (1)
  1. OXYCODONE HCL EXTENDED-RELEASE [Suspect]
     Indication: COMPLEX REGIONAL PAIN SYNDROME
     Dosage: (20 MG,2 PM),ORAL
     Route: 048
     Dates: start: 20070822

REACTIONS (5)
  - CONDITION AGGRAVATED [None]
  - DRUG EFFECT DECREASED [None]
  - DRUG INEFFECTIVE [None]
  - DRUG WITHDRAWAL SYNDROME [None]
  - PAIN [None]
